FAERS Safety Report 17751134 (Version 1)
Quarter: 2020Q2

REPORT INFORMATION
  Report Type: Spontaneous
  Country: US (occurrence: US)
  Receive Date: 20200506
  Receipt Date: 20200506
  Transmission Date: 20200714
  Serious: No
  Sender: FDA-Public Use
  Company Number: None

PATIENT
  Age: 37 Year
  Sex: Male
  Weight: 73.94 kg

DRUGS (2)
  1. VIVITROL [Suspect]
     Active Substance: NALTREXONE
     Indication: PRODUCT USED FOR UNKNOWN INDICATION
     Route: 030
     Dates: start: 20200327, end: 20200429
  2. VIVITROL [Concomitant]
     Active Substance: NALTREXONE
     Dates: start: 20200328, end: 20200429

REACTIONS (3)
  - Injection site pain [None]
  - Injection site swelling [None]
  - Injection site nodule [None]

NARRATIVE: CASE EVENT DATE: 20200429
